FAERS Safety Report 19172677 (Version 2)
Quarter: 2021Q2

REPORT INFORMATION
  Report Type: Spontaneous
  Country: CN (occurrence: CN)
  Receive Date: 20210423
  Receipt Date: 20210503
  Transmission Date: 20210717
  Serious: Yes (Death, Other)
  Sender: FDA-Public Use
  Company Number: CN-ASTRAZENECA-2021A328818

PATIENT
  Age: 65 Year
  Sex: Female

DRUGS (4)
  1. OSIMERTINIB. [Suspect]
     Active Substance: OSIMERTINIB
     Indication: LUNG ADENOCARCINOMA STAGE IV
     Dosage: 80 MG
     Route: 048
  2. ICOTINIB [Concomitant]
     Active Substance: ICOTINIB
  3. VEMURAFENIB. [Concomitant]
     Active Substance: VEMURAFENIB
  4. VEMURAFENIB. [Concomitant]
     Active Substance: VEMURAFENIB

REACTIONS (4)
  - Vomiting [Recovering/Resolving]
  - Malignant neoplasm progression [Fatal]
  - Acquired gene mutation [Unknown]
  - Drug resistance [Unknown]

NARRATIVE: CASE EVENT DATE: 201901
